FAERS Safety Report 4736513-2 (Version None)
Quarter: 2005Q3

REPORT INFORMATION
  Report Type: 
  Country: None (occurrence: None)
  Receive Date: 20050804
  Receipt Date: 20050804
  Transmission Date: 20060218
  Serious: Yes (Life-Threatening, Hospitalization)
  Sender: FDA-Public Use
  Company Number: None

PATIENT
  Age: 63 Year
  Sex: Male

DRUGS (3)
  1. WARFARIN 5MG [Suspect]
     Indication: ATRIAL FIBRILLATION
     Dosage: 5MG DAILY
  2. AMIODORONE 400MG/200MG [Suspect]
     Indication: ATRIAL FIBRILLATION
     Dosage: 400 MG BID FOLLOWED 200 MG DAILY
     Dates: start: 20050523, end: 20050616
  3. AMIODORONE 400MG/200MG [Suspect]
     Indication: VENTRICULAR TACHYCARDIA
     Dosage: 400 MG BID FOLLOWED 200 MG DAILY
     Dates: start: 20050523, end: 20050616

REACTIONS (10)
  - ASTHENIA [None]
  - COLONOSCOPY ABNORMAL [None]
  - DRUG INTERACTION [None]
  - DUODENITIS [None]
  - DYSPNOEA [None]
  - HAEMATOCRIT DECREASED [None]
  - HAEMOGLOBIN DECREASED [None]
  - HAEMOPTYSIS [None]
  - INTERNATIONAL NORMALISED RATIO INCREASED [None]
  - POLYP [None]
